FAERS Safety Report 24864290 (Version 1)
Quarter: 2025Q1

REPORT INFORMATION
  Report Type: Spontaneous
  Country: CN (occurrence: CN)
  Receive Date: 20250120
  Receipt Date: 20250120
  Transmission Date: 20250409
  Serious: Yes (Other)
  Sender: BEXIMCO PHARMACEUTICALS
  Company Number: CN-BEXIMCO-2025BEX00003

PATIENT
  Age: 4 Year
  Sex: Female

DRUGS (1)
  1. FLECAINIDE ACETATE [Suspect]
     Active Substance: FLECAINIDE ACETATE
     Indication: Ventricular fibrillation

REACTIONS (1)
  - Electrocardiogram abnormal [Unknown]
